FAERS Safety Report 9648893 (Version 1)
Quarter: 2013Q4

REPORT INFORMATION
  Report Type: Spontaneous
  Country: US (occurrence: None)
  Receive Date: 20131018
  Receipt Date: 20131018
  Transmission Date: 20140711
  Serious: Yes (Other)
  Sender: FDA-Public Use
  Company Number: AEGR000071

PATIENT
  Age: 64 Year
  Sex: Female
  Weight: 61.2 kg

DRUGS (7)
  1. JUXTAPID [Suspect]
     Indication: TYPE IIA HYPERLIPIDAEMIA
     Route: 048
     Dates: start: 20130625
  2. FLUOXETINE (FLUOXETINE HYDROCHLORIDE) [Concomitant]
  3. LAMICTAL (LAMOTRIGINE) [Concomitant]
  4. LANSOPRAZOLE (LANSOPRAZOLE) [Concomitant]
  5. SEROQUEL (QUETIAPINE FUMARATE) [Concomitant]
  6. SYNTHROID (LEVOTHYROXINE SODIUM) [Concomitant]
  7. XANAX (ALPRAZOLAM) [Concomitant]

REACTIONS (1)
  - Nausea [None]
